FAERS Safety Report 6618319-2 (Version None)
Quarter: 2010Q1

REPORT INFORMATION
  Report Type: 
  Country: None (occurrence: None)
  Receive Date: 20100302
  Receipt Date: 20100223
  Transmission Date: 20100710
  Serious: Yes (Hospitalization, Other)
  Sender: FDA-Public Use
  Company Number: 1000012019

PATIENT
  Sex: Female

DRUGS (8)
  1. SAVELLA [Suspect]
     Indication: FIBROMYALGIA
     Dosage: 100 MG (50 MG, 2 IN 1 D),ORAL; 100 MG QAM AND 50 MG QPM,ORAL
     Route: 048
     Dates: start: 20090901, end: 20091201
  2. SAVELLA [Suspect]
     Indication: FIBROMYALGIA
     Dosage: 100 MG (50 MG, 2 IN 1 D),ORAL; 100 MG QAM AND 50 MG QPM,ORAL
     Route: 048
     Dates: start: 20091201
  3. LYRICA [Suspect]
     Indication: FIBROMYALGIA
     Dosage: 100 MG (50 MG,2 IN 1 D),ORAL; 200 MG (100 MG, 2 IN 1 D),ORAL
     Route: 048
     Dates: start: 20090301, end: 20091201
  4. LYRICA [Suspect]
     Indication: FIBROMYALGIA
     Dosage: 100 MG (50 MG,2 IN 1 D),ORAL; 200 MG (100 MG, 2 IN 1 D),ORAL
     Route: 048
     Dates: start: 20091201
  5. IMITREX [Suspect]
  6. ENTOCORT (CAPSULES) [Concomitant]
  7. RITALIN [Concomitant]
  8. SOMA [Concomitant]

REACTIONS (16)
  - AGITATION [None]
  - ARTHRALGIA [None]
  - CONFUSIONAL STATE [None]
  - DIARRHOEA [None]
  - ERYTHEMA [None]
  - HYPERACUSIS [None]
  - JOINT SWELLING [None]
  - MIGRAINE [None]
  - NAUSEA [None]
  - OEDEMA PERIPHERAL [None]
  - PAIN [None]
  - PAIN IN EXTREMITY [None]
  - PHOTOPHOBIA [None]
  - SENSATION OF FOREIGN BODY [None]
  - SKIN CHAPPED [None]
  - VOMITING [None]
